FAERS Safety Report 4759175-7 (Version None)
Quarter: 2005Q3

REPORT INFORMATION
  Report Type: 
  Country: None (occurrence: None)
  Receive Date: 20050901
  Receipt Date: 20050819
  Transmission Date: 20060218
  Serious: Yes (Other)
  Sender: FDA-Public Use
  Company Number: 2005AP04538

PATIENT
  Age: 90 Year
  Sex: Female

DRUGS (1)
  1. ZESTRIL [Suspect]
     Indication: PNEUMONIA ASPIRATION
     Route: 048
     Dates: start: 20050721, end: 20050726

REACTIONS (2)
  - NECROSIS [None]
  - PERIPHERAL VASCULAR DISORDER [None]
